FAERS Safety Report 4431458-X (Version None)
Quarter: 2004Q3

REPORT INFORMATION
  Report Type: 
  Country: None (occurrence: None)
  Receive Date: 20040824
  Receipt Date: 20040525
  Transmission Date: 20050211
  Serious: Yes (Other)
  Sender: FDA-Public Use
  Company Number: PHNU2004DE01926

PATIENT
  Age: 50 Year
  Sex: Male

DRUGS (4)
  1. SANDIMMUNE [Suspect]
     Indication: APLASTIC ANAEMIA
     Route: 048
  2. FERRUM ^GREEN CROSS^ [Concomitant]
  3. LISINOPRIL [Concomitant]
  4. ISDN ^ALIUD PHARMA^ [Concomitant]

REACTIONS (1)
  - ANGINA PECTORIS [None]
